FAERS Safety Report 21853776 (Version 5)
Quarter: 2023Q1

REPORT INFORMATION
  Report Type: Spontaneous
  Country: US (occurrence: US)
  Receive Date: 20230112
  Receipt Date: 20230314
  Transmission Date: 20230418
  Serious: No
  Sender: FDA-Public Use
  Company Number: US-PFIZER INC-2020047655

PATIENT
  Age: 69 Year
  Sex: Female

DRUGS (6)
  1. RETACRIT [Suspect]
     Active Substance: EPOETIN ALFA-EPBX
     Indication: Nephrogenic anaemia
     Dosage: 2 ML, WEEKLY BY INJECTION
     Route: 051
  2. RETACRIT [Suspect]
     Active Substance: EPOETIN ALFA-EPBX
     Dosage: 10000 IU, WEEKLY
  3. RETACRIT [Suspect]
     Active Substance: EPOETIN ALFA-EPBX
     Dosage: 20000 IU, WEEKLY BY INJECTION
     Route: 051
  4. RETACRIT [Suspect]
     Active Substance: EPOETIN ALFA-EPBX
     Dosage: UNK
     Dates: end: 20201221
  5. RETACRIT [Suspect]
     Active Substance: EPOETIN ALFA-EPBX
     Dosage: 10000 IU, EVERY 2 WEEKS BY INJECTION ROUTE
     Route: 051
  6. RETACRIT [Suspect]
     Active Substance: EPOETIN ALFA-EPBX
     Dosage: 10000 IU/ML, EVERY 2 WEEKS
     Dates: start: 20220720

REACTIONS (4)
  - Visual impairment [Unknown]
  - Off label use [Unknown]
  - Product use issue [Unknown]
  - Mental disorder [Unknown]
